FAERS Safety Report 7292505-3 (Version None)
Quarter: 2011Q1

REPORT INFORMATION
  Report Type: 
  Country: None (occurrence: None)
  Receive Date: 20110204
  Receipt Date: 20110120
  Transmission Date: 20110831
  Serious: Yes (Death)
  Sender: FDA-Public Use
  Company Number: CV20110042

PATIENT
  Age: 17 Year
  Sex: Male

DRUGS (2)
  1. PROPOFOL [Suspect]
  2. OXYCODONE HCL [Suspect]

REACTIONS (1)
  - TOXICITY TO VARIOUS AGENTS [None]
